FAERS Safety Report 5221830-2 (Version None)
Quarter: 2007Q1

REPORT INFORMATION
  Report Type: 
  Country: None (occurrence: None)
  Receive Date: 20070129
  Receipt Date: 20070123
  Transmission Date: 20070707
  Serious: Yes (Hospitalization)
  Sender: FDA-Public Use
  Company Number: US-ELI_LILLY_AND_COMPANY-US200603005147

PATIENT
  Age: 36 Year
  Sex: Female
  Weight: 117.46 kg

DRUGS (2)
  1. SERZONE [Concomitant]
     Dates: start: 20000101
  2. ZYPREXA [Suspect]
     Dosage: 15 MG, UNK
     Dates: start: 20000101, end: 20030911

REACTIONS (8)
  - BLOOD CHOLESTEROL ABNORMAL [None]
  - BLOOD TRIGLYCERIDES INCREASED [None]
  - CHOLECYSTECTOMY [None]
  - DIABETES MELLITUS [None]
  - HYPERTENSION [None]
  - METABOLIC DISORDER [None]
  - OBESITY [None]
  - WEIGHT INCREASED [None]
